FAERS Safety Report 8965095 (Version 1)
Quarter: 2012Q4

REPORT INFORMATION
  Report Type: 
  Country: US (occurrence: US)
  Receive Date: 20121213
  Receipt Date: 20121213
  Transmission Date: 20130627
  Serious: No
  Sender: FDA-Public Use
  Company Number: US-BRISTOL-MYERS SQUIBB COMPANY-16936411

PATIENT
  Age: 74 Year
  Sex: Female
  Weight: 83.9 kg

DRUGS (4)
  1. PRAVACHOL [Suspect]
     Dosage: tabs
     Route: 048
  2. AMILORIDE HCL + HCTZ [Suspect]
     Dosage: tabs
     Route: 048
  3. XANAX [Concomitant]
  4. ALPRAZOLAM [Concomitant]

REACTIONS (3)
  - Oropharyngeal pain [Recovered/Resolved]
  - Oral discomfort [Recovered/Resolved]
  - Burning sensation [Recovered/Resolved]
